FAERS Safety Report 4763263-9 (Version None)
Quarter: 2005Q3

REPORT INFORMATION
  Report Type: 
  Country: None (occurrence: None)
  Receive Date: 20050908
  Receipt Date: 20050831
  Transmission Date: 20060218
  Serious: Yes (Other)
  Sender: FDA-Public Use
  Company Number: US-JNJFOC-20050900457

PATIENT
  Sex: Female
  Weight: 84.82 kg

DRUGS (2)
  1. REMICADE [Suspect]
     Route: 042
  2. ANTIBIOTICS [Concomitant]

REACTIONS (2)
  - BLOOD PRESSURE INCREASED [None]
  - RETINAL DISORDER [None]
